FAERS Safety Report 24224828 (Version 1)
Quarter: 2024Q3

REPORT INFORMATION
  Report Type: Spontaneous
  Country: DE (occurrence: DE)
  Receive Date: 20240819
  Receipt Date: 20240819
  Transmission Date: 20241016
  Serious: Yes (Other)
  Sender: JOHNSON AND JOHNSON
  Company Number: DE-BAYER-2024A119016

PATIENT

DRUGS (1)
  1. XARELTO [Suspect]
     Active Substance: RIVAROXABAN
     Indication: Cardiovascular disorder
     Dosage: 2.5 MG
     Route: 048

REACTIONS (1)
  - Knee operation [Unknown]
